FAERS Safety Report 14309890 (Version 5)
Quarter: 2018Q1

REPORT INFORMATION
  Report Type: Spontaneous
  Country: FR (occurrence: FR)
  Receive Date: 20171220
  Receipt Date: 20180307
  Transmission Date: 20180509
  Serious: Yes (Hospitalization, Other)
  Sender: FDA-Public Use
  Company Number: FR-JNJFOC-20171225337

PATIENT
  Age: 85 Year
  Sex: Female
  Weight: 68 kg

DRUGS (8)
  1. NEBIVOLOL. [Suspect]
     Active Substance: NEBIVOLOL
     Indication: HYPERTENSION
     Route: 065
  2. ALDACTAZINE [Concomitant]
     Active Substance: ALTHIAZIDE\SPIRONOLACTONE
     Indication: HYPERTENSION
     Route: 048
     Dates: start: 2016
  3. NISISCO [Concomitant]
     Active Substance: HYDROCHLOROTHIAZIDE\VALSARTAN
     Indication: HYPERTENSION
     Route: 065
  4. TRAMCET [Suspect]
     Active Substance: ACETAMINOPHEN\TRAMADOL
     Indication: ARTHRALGIA
     Route: 048
  5. PERINDOPRIL ARGININE BIOGARAN [Suspect]
     Active Substance: PERINDOPRIL ARGININE
     Indication: HYPERTENSION
     Route: 048
     Dates: start: 2017
  6. SPIRONOLACTONE. [Suspect]
     Active Substance: SPIRONOLACTONE
     Indication: HYPERTENSION
     Route: 048
     Dates: start: 2017
  7. RILMENIDINE [Suspect]
     Active Substance: RILMENIDINE
     Indication: HYPERTENSION
     Route: 065
     Dates: start: 2017
  8. ASPIRIN PROTECT [Concomitant]
     Active Substance: ASPIRIN
     Indication: STENT PLACEMENT
     Route: 065

REACTIONS (15)
  - Diarrhoea [Unknown]
  - Acute kidney injury [Unknown]
  - Myalgia [Not Recovered/Not Resolved]
  - Palpitations [Unknown]
  - Fatigue [Unknown]
  - Respiratory disorder [Unknown]
  - Cough [Not Recovered/Not Resolved]
  - Asthma [Unknown]
  - Arthralgia [Unknown]
  - Feeling hot [Unknown]
  - Medication error [Unknown]
  - Vasculitis [Unknown]
  - Abdominal pain [Unknown]
  - Tachycardia [Unknown]
  - Nausea [Unknown]

NARRATIVE: CASE EVENT DATE: 2017
